FAERS Safety Report 6098474-6 (Version None)
Quarter: 2009Q1

REPORT INFORMATION
  Report Type: 
  Country: None (occurrence: None)
  Receive Date: 20090302
  Receipt Date: 20090222
  Transmission Date: 20090719
  Serious: Yes (Hospitalization)
  Sender: FDA-Public Use
  Company Number: GB-AMGEN-US335629

PATIENT
  Age: 73 Year
  Sex: Female

DRUGS (5)
  1. ENBREL [Suspect]
     Indication: DRUG USE FOR UNKNOWN INDICATION
     Dosage: 50MG, FREQUENCY UNSPECIFIED
     Route: 058
     Dates: start: 20070202, end: 20081201
  2. GOLD SODIUM THIOMALATE [Concomitant]
     Dosage: UNKNOWN
     Route: 065
  3. HYDROXYCHLOROQUINE SULFATE [Concomitant]
     Dosage: UNKNOWN
     Route: 065
  4. METHOTREXATE [Concomitant]
     Dosage: UNKNOWN
     Route: 065
  5. ARAVA [Concomitant]
     Dosage: UNKNOWN
     Route: 048

REACTIONS (4)
  - DIARRHOEA [None]
  - PYREXIA [None]
  - SWEATING FEVER [None]
  - WEIGHT DECREASED [None]
